FAERS Safety Report 6739368-X (Version None)
Quarter: 2010Q2

REPORT INFORMATION
  Report Type: 
  Country: None (occurrence: None)
  Receive Date: 20100518
  Receipt Date: 20090729
  Transmission Date: 20101027
  Serious: Yes (Other)
  Sender: FDA-Public Use
  Company Number: WWISSUE-319

PATIENT

DRUGS (1)
  1. DOXYCYCLINE HYCLATE [Suspect]
     Dates: start: 20090501, end: 20090701

REACTIONS (1)
  - CHROMATURIA [None]
